FAERS Safety Report 17874539 (Version 2)
Quarter: 2020Q3

REPORT INFORMATION
  Report Type: Report from Study
  Country: GB (occurrence: GB)
  Receive Date: 20200609
  Receipt Date: 20200703
  Transmission Date: 20201103
  Serious: Yes (Hospitalization)
  Sender: FDA-Public Use
  Company Number: GB-ROCHE-2617736

PATIENT
  Age: 54 Year
  Sex: Female

DRUGS (13)
  1. TACROLIMUS. [Suspect]
     Active Substance: TACROLIMUS
     Indication: RENAL TRANSPLANT
     Dosage: 22 MILLIGRAM DAILY;
     Route: 065
     Dates: end: 20200316
  2. BISOPROLOL [Concomitant]
     Active Substance: BISOPROLOL
     Dosage: 2.5 MILLIGRAM DAILY;
     Route: 065
  3. ASPIRIN [ACETYLSALICYLIC ACID] [Concomitant]
     Active Substance: ASPIRIN
     Route: 065
  4. GLICLAZIDE [Concomitant]
     Active Substance: GLICLAZIDE
     Dosage: IN MORNING
     Route: 065
  5. PYRIDOXINE [Concomitant]
     Active Substance: PYRIDOXINE
     Route: 065
  6. ISONIAZID. [Concomitant]
     Active Substance: ISONIAZID
     Route: 065
  7. OMEPRAZOLE. [Concomitant]
     Active Substance: OMEPRAZOLE
     Route: 065
  8. DOXAZOSIN [Concomitant]
     Active Substance: DOXAZOSIN MESYLATE
     Dosage: 2 MILLIGRAM DAILY;
     Route: 065
  9. COTRIMOXAZOLE [Concomitant]
     Active Substance: SULFAMETHOXAZOLE\TRIMETHOPRIM
     Route: 065
  10. GLICLAZIDE [Concomitant]
     Active Substance: GLICLAZIDE
     Dosage: 120 MG AND 80 MG (MORNING AND EVENING)
     Route: 065
  11. MYCOPHENOLATE MOFETIL. [Suspect]
     Active Substance: MYCOPHENOLATE MOFETIL
     Indication: RENAL TRANSPLANT
     Dosage: 1000 MILLIGRAM DAILY;
     Route: 065
     Dates: end: 20200310
  12. PREDNISOLONE. [Suspect]
     Active Substance: PREDNISOLONE
     Indication: RENAL TRANSPLANT
     Dosage: 5 MILLIGRAM DAILY;
     Route: 065
  13. AMLODIPINE [Concomitant]
     Active Substance: AMLODIPINE BESYLATE
     Dosage: 5 MILLIGRAM DAILY;
     Route: 065

REACTIONS (1)
  - COVID-19 [Recovering/Resolving]
